FAERS Safety Report 7800922-5 (Version None)
Quarter: 2011Q4

REPORT INFORMATION
  Report Type: 
  Country: None (occurrence: None)
  Receive Date: 20111006
  Receipt Date: 20110929
  Transmission Date: 20120403
  Serious: Yes (Hospitalization)
  Sender: FDA-Public Use
  Company Number: US-B.I. PHARMACEUTICALS,INC./RIDGEFIELD-2011-BP-23216BP

PATIENT
  Sex: Male

DRUGS (2)
  1. TRADJENTA [Suspect]
     Indication: TYPE 2 DIABETES MELLITUS
  2. JANUVIA [Suspect]

REACTIONS (1)
  - PANCREATITIS [None]
